FAERS Safety Report 6916508-0 (Version None)
Quarter: 2010Q3

REPORT INFORMATION
  Report Type: 
  Country: None (occurrence: None)
  Receive Date: 20100804
  Receipt Date: 20100730
  Transmission Date: 20110219
  Serious: Yes (Death, Hospitalization)
  Sender: FDA-Public Use
  Company Number: 2010US002750

PATIENT
  Age: 62 Year
  Sex: Female
  Weight: 120 kg

DRUGS (3)
  1. AMBISOME [Suspect]
     Indication: CANDIDIASIS
     Dates: start: 20100710
  2. AMBISOME [Suspect]
     Indication: CONDITION AGGRAVATED
     Dates: start: 20100710
  3. VANCOMYCIN [Concomitant]

REACTIONS (1)
  - SEPSIS [None]
